FAERS Safety Report 19400951 (Version 2)
Quarter: 2021Q3

REPORT INFORMATION
  Report Type: Report from Study
  Country: DE (occurrence: DE)
  Receive Date: 20210610
  Receipt Date: 20210909
  Transmission Date: 20211014
  Serious: Yes (Hospitalization, Other)
  Sender: FDA-Public Use
  Company Number: DE-TEVA-2021-DE-1919258

PATIENT
  Age: 36 Year
  Sex: Female

DRUGS (6)
  1. COPAXONE [Suspect]
     Active Substance: GLATIRAMER ACETATE
     Indication: MULTIPLE SCLEROSIS
     Route: 058
     Dates: start: 20200401
  2. IBU 400MG 1A [Concomitant]
     Indication: HEADACHE
     Dosage: 1 TABLET ? UP TO 3 TABLETS IN MAX PER 24H
     Route: 048
     Dates: start: 20210322
  3. PROMETHAZIN 25MG TBL [Concomitant]
     Indication: RESTLESSNESS
     Dosage: 1 TABLET ? UP TO 3 TABLETS IN MAX PER 24H
     Route: 048
     Dates: start: 20210318
  4. PROMETHAZIN 25MG TBL [Concomitant]
     Indication: TENSION
  5. DEKRISTOL 20000 [Concomitant]
     Active Substance: CHOLECALCIFEROL
     Route: 048
     Dates: start: 20210318
  6. NASENSPRAY E RATIO SPRAY [Concomitant]
     Indication: DYSPNOEA
     Dosage: 1 HUB ? UP TO  3 HUB IN MAX PER 24H
     Route: 045
     Dates: start: 20210322

REACTIONS (4)
  - Restlessness [Unknown]
  - Sinus tachycardia [Recovered/Resolved]
  - Heart rate increased [Recovered/Resolved]
  - Fatigue [Unknown]

NARRATIVE: CASE EVENT DATE: 2021
